FAERS Safety Report 17439353 (Version 1)
Quarter: 2020Q1

REPORT INFORMATION
  Report Type: Spontaneous
  Country: US (occurrence: US)
  Receive Date: 20200219
  Receipt Date: 20200219
  Transmission Date: 20200409
  Serious: Yes (Other)
  Sender: FDA-Public Use
  Company Number: None

PATIENT
  Age: 53 Year
  Sex: Female
  Weight: 56.43 kg

DRUGS (6)
  1. DOXYCYCLINE 100MG BID [Concomitant]
  2. LEVETIRACETAM 2500MG BID [Concomitant]
  3. SORBITOL 30ML DAILY [Concomitant]
  4. LORATADINE. [Suspect]
     Active Substance: LORATADINE
     Indication: RHINITIS ALLERGIC
     Dosage: ?          OTHER ROUTE:GASTROSTOMY TUBE?
     Dates: start: 20181127, end: 20191215
  5. PHENOBARBITAL 97.2MG DAILY [Concomitant]
  6. MONTELUKAST 10MG DAILY [Concomitant]

REACTIONS (1)
  - Urinary retention [None]

NARRATIVE: CASE EVENT DATE: 20191213
